FAERS Safety Report 10868054 (Version 1)
Quarter: 2015Q1

REPORT INFORMATION
  Report Type: Spontaneous
  Country: AU (occurrence: AU)
  Receive Date: 20150225
  Receipt Date: 20150225
  Transmission Date: 20150721
  Serious: Yes (Hospitalization, Other)
  Sender: FDA-Public Use
  Company Number: AU-ELI_LILLY_AND_COMPANY-AU201412006295

PATIENT
  Age: 70 Year
  Sex: Female

DRUGS (2)
  1. CARBOPLATIN. [Suspect]
     Active Substance: CARBOPLATIN
     Indication: NON-SMALL CELL LUNG CANCER
     Dosage: 518.3 MG, CYCLICAL
     Dates: start: 20120504, end: 20120615
  2. ALIMTA [Suspect]
     Active Substance: PEMETREXED DISODIUM
     Indication: NON-SMALL CELL LUNG CANCER
     Dosage: 775.5 MG, CYCLICAL
     Route: 042
     Dates: start: 20120504, end: 20120615

REACTIONS (8)
  - Anaemia [Recovering/Resolving]
  - Inflammation [Unknown]
  - Vulvovaginal pruritus [Unknown]
  - Febrile neutropenia [Unknown]
  - Vomiting [Recovered/Resolved]
  - Leukopenia [Unknown]
  - Left ventricular hypertrophy [Unknown]
  - Thrombocytopenia [Unknown]

NARRATIVE: CASE EVENT DATE: 20120621
